FAERS Safety Report 8380692-5 (Version None)
Quarter: 2012Q2

REPORT INFORMATION
  Report Type: 
  Country: None (occurrence: None)
  Receive Date: 20120523
  Receipt Date: 20120515
  Transmission Date: 20120825
  Serious: No
  Sender: FDA-Public Use
  Company Number: US-B.I. PHARMACEUTICALS,INC./RIDGEFIELD-2012-BP-10848BP

PATIENT
  Sex: Female

DRUGS (4)
  1. LOVAZA [Concomitant]
     Indication: SUPPLEMENTATION THERAPY
     Route: 048
  2. CALCIUM [Concomitant]
     Indication: SUPPLEMENTATION THERAPY
     Route: 048
  3. ZANTAC [Suspect]
     Indication: GASTRIC DISORDER
     Dosage: 300 MG
     Route: 048
     Dates: start: 20120415
  4. MULTI-VITAMIN [Concomitant]
     Indication: SUPPLEMENTATION THERAPY
     Route: 048

REACTIONS (3)
  - FLATULENCE [None]
  - GASTRIC HYPERTONIA [None]
  - ABDOMINAL PAIN UPPER [None]
